FAERS Safety Report 12428333 (Version 1)
Quarter: 2016Q2

REPORT INFORMATION
  Report Type: Spontaneous
  Country: US (occurrence: US)
  Receive Date: 20160602
  Receipt Date: 20160602
  Transmission Date: 20160815
  Serious: No
  Sender: FDA-Public Use
  Company Number: US-BRISTOL-MYERS SQUIBB COMPANY-BMS-2016-042292

PATIENT
  Age: 59 Year
  Sex: Male

DRUGS (4)
  1. SOVALDI [Suspect]
     Active Substance: SOFOSBUVIR
     Indication: CHRONIC HEPATITIS C
     Dosage: 400 MG, QD X 24WKS
     Route: 048
     Dates: start: 20160505
  2. NORCO [Concomitant]
     Active Substance: ACETAMINOPHEN\HYDROCODONE BITARTRATE
     Indication: PRODUCT USED FOR UNKNOWN INDICATION
     Route: 065
  3. RIBAVIRIN. [Concomitant]
     Active Substance: RIBAVIRIN
     Indication: PRODUCT USED FOR UNKNOWN INDICATION
     Route: 065
  4. DAKLINZA [Suspect]
     Active Substance: DACLATASVIR
     Indication: CHRONIC HEPATITIS C
     Dosage: 60 MG, QD X 24WKS
     Route: 048
     Dates: start: 20160505

REACTIONS (2)
  - Headache [Unknown]
  - Fatigue [Unknown]

NARRATIVE: CASE EVENT DATE: 20160505
